FAERS Safety Report 16249062 (Version 1)
Quarter: 2019Q2

REPORT INFORMATION
  Report Type: Spontaneous
  Country: FR (occurrence: FR)
  Receive Date: 20190429
  Receipt Date: 20190429
  Transmission Date: 20190711
  Serious: Yes (Other)
  Sender: FDA-Public Use
  Company Number: FR-AUROBINDO-AUR-APL-2019-023959

PATIENT

DRUGS (2)
  1. CYMBALTA [Concomitant]
     Active Substance: DULOXETINE HYDROCHLORIDE
     Indication: DEPRESSION
     Dosage: 60 MILLIGRAM, ONCE A DAY
     Route: 065
  2. TRAMADOL. [Suspect]
     Active Substance: TRAMADOL
     Indication: PAIN
     Dosage: 50 MILLIGRAM, ONCE A DAY
     Route: 065

REACTIONS (22)
  - Asthenia [Unknown]
  - Crying [Unknown]
  - Tinnitus [Unknown]
  - Cold sweat [Unknown]
  - Syncope [Unknown]
  - Muscle spasms [Unknown]
  - Heart rate abnormal [Unknown]
  - Dysstasia [Unknown]
  - Rash [Unknown]
  - Insomnia [Unknown]
  - Anxiety [Unknown]
  - Blood pressure abnormal [Unknown]
  - Haematoma [Unknown]
  - Condition aggravated [Unknown]
  - Dyspnoea [Unknown]
  - Malaise [Unknown]
  - Muscle contractions involuntary [Unknown]
  - Drug ineffective [Unknown]
  - Pain [Unknown]
  - Irritability [Unknown]
  - Depressed mood [Unknown]
  - Confusional state [Unknown]
